FAERS Safety Report 8739263 (Version 5)
Quarter: 2013Q2

REPORT INFORMATION
  Report Type: Spontaneous
  Country: US (occurrence: None)
  Receive Date: 20120807
  Receipt Date: 20130507
  Transmission Date: 20140414
  Serious: Yes (Hospitalization, Other)
  Sender: FDA-Public Use
  Company Number: ADR-2012-01413

PATIENT
  Sex: Male

DRUGS (2)
  1. LIORESAL [Suspect]
     Indication: CEREBRAL PALSY
  2. LIORESAL [Suspect]
     Indication: MUSCLE SPASTICITY

REACTIONS (11)
  - Device related infection [None]
  - Device connection issue [None]
  - Device malfunction [None]
  - Device leakage [None]
  - Device deposit issue [None]
  - Hypoaesthesia [None]
  - Gait disturbance [None]
  - Bacterial infection [None]
  - Chest pain [None]
  - Hypoaesthesia [None]
  - Hypoaesthesia [None]
